FAERS Safety Report 9194191 (Version 2)
Quarter: 2013Q2

REPORT INFORMATION
  Report Type: Spontaneous
  Country: DK (occurrence: IT)
  Receive Date: 20130327
  Receipt Date: 20130508
  Transmission Date: 20140414
  Serious: Yes (Hospitalization)
  Sender: FDA-Public Use
  Company Number: IT-FRI-1000043778

PATIENT
  Age: 48 Year
  Sex: Female

DRUGS (3)
  1. CITALOPRAM [Suspect]
     Indication: INSOMNIA
     Dosage: 120 MG
     Route: 048
     Dates: start: 20121220, end: 20121220
  2. RIVOTRIL [Suspect]
     Indication: INSOMNIA
     Dosage: 10 MG
     Route: 048
     Dates: start: 20121220, end: 20121220
  3. PARACETAMOL [Concomitant]
     Dates: start: 20121219, end: 20121219

REACTIONS (5)
  - Bradykinesia [Recovered/Resolved]
  - Bradyphrenia [Recovered/Resolved]
  - Sopor [Recovered/Resolved]
  - Intentional overdose [Unknown]
  - Off label use [Unknown]
